FAERS Safety Report 5621772-4 (Version None)
Quarter: 2008Q1

REPORT INFORMATION
  Report Type: 
  Country: None (occurrence: None)
  Receive Date: 20080211
  Receipt Date: 20080206
  Transmission Date: 20080703
  Serious: Yes (Other)
  Sender: FDA-Public Use
  Company Number: A0707701A

PATIENT
  Age: 21 Year
  Sex: Female
  Weight: 119.5 kg

DRUGS (10)
  1. ALLI [Suspect]
     Dates: start: 20071001, end: 20080203
  2. VITAMIN B-12 [Concomitant]
     Route: 060
  3. FERROUS SULFATE TAB [Concomitant]
  4. ZOCOR [Concomitant]
  5. SYNTHROID [Concomitant]
  6. LEXAPRO [Concomitant]
  7. AMITRIPTYLINE HCL [Concomitant]
  8. MAXALT [Concomitant]
  9. BUTALBITAL/APAP [Concomitant]
  10. MULTI-VITAMIN [Concomitant]

REACTIONS (8)
  - DYSPHAGIA [None]
  - HAEMATOCHEZIA [None]
  - PHARMACEUTICAL PRODUCT COMPLAINT [None]
  - RECTAL HAEMORRHAGE [None]
  - SPEECH DISORDER [None]
  - THROMBOSIS [None]
  - THYROIDITIS [None]
  - WEIGHT INCREASED [None]
